FAERS Safety Report 16427573 (Version 1)
Quarter: 2019Q2

REPORT INFORMATION
  Report Type: Report from Study
  Country: US (occurrence: US)
  Receive Date: 20190613
  Receipt Date: 20190613
  Transmission Date: 20190711
  Serious: Yes (Other)
  Sender: FDA-Public Use
  Company Number: US-JNJFOC-20190119998

PATIENT
  Sex: Female

DRUGS (1)
  1. TREMFYA [Suspect]
     Active Substance: GUSELKUMAB
     Indication: PSORIASIS
     Route: 058
     Dates: start: 20190109

REACTIONS (8)
  - Adverse reaction [Unknown]
  - Glycosylated haemoglobin increased [Unknown]
  - Depression [Unknown]
  - Limb injury [Unknown]
  - Insomnia [Unknown]
  - Asthenia [Unknown]
  - Fatigue [Unknown]
  - Impaired driving ability [Unknown]

NARRATIVE: CASE EVENT DATE: 201901
